FAERS Safety Report 9915200 (Version 1)
Quarter: 2014Q1

REPORT INFORMATION
  Report Type: Report from Study
  Country: TR (occurrence: TR)
  Receive Date: 20140220
  Receipt Date: 20140220
  Transmission Date: 20141002
  Serious: Yes (Other)
  Sender: FDA-Public Use
  Company Number: TR-US-EMD SERONO, INC.-7269341

PATIENT
  Age: 38 Year
  Sex: Male
  Weight: 80 kg

DRUGS (3)
  1. REBIF [Suspect]
     Indication: MULTIPLE SCLEROSIS
  2. PROFENID [Suspect]
     Indication: PAIN
  3. PANTOPRAZOLE [Suspect]
     Indication: GASTRIC DISORDER

REACTIONS (1)
  - Pneumonia [Unknown]
